FAERS Safety Report 6711946-3 (Version None)
Quarter: 2010Q2

REPORT INFORMATION
  Report Type: 
  Country: None (occurrence: None)
  Receive Date: 20100505
  Receipt Date: 20100501
  Transmission Date: 20101027
  Serious: Yes (Hospitalization, Other)
  Sender: FDA-Public Use
  Company Number: US-BRISTOL-MYERS SQUIBB COMPANY-15088420

PATIENT
  Age: 66 Year
  Sex: Male
  Weight: 96 kg

DRUGS (2)
  1. TAXOL [Suspect]
     Indication: OESOPHAGEAL ADENOCARCINOMA
     Dosage: RECENT DOSE: 17MAR2010
     Dates: start: 20100119
  2. CISPLATIN [Suspect]
     Indication: OESOPHAGEAL ADENOCARCINOMA
     Dosage: RECENT DOSE: 17MAR2010
     Dates: start: 20100119

REACTIONS (4)
  - DEHYDRATION [None]
  - NAUSEA [None]
  - SUPRAVENTRICULAR TACHYCARDIA [None]
  - VOMITING [None]
